FAERS Safety Report 6191123-8 (Version None)
Quarter: 2009Q2

REPORT INFORMATION
  Report Type: 
  Country: None (occurrence: None)
  Receive Date: 20090513
  Receipt Date: 20090513
  Transmission Date: 20091009
  Serious: Yes (Other)
  Sender: FDA-Public Use
  Company Number: None

PATIENT
  Sex: Female
  Weight: 64.8644 kg

DRUGS (1)
  1. BONIVA [Suspect]
     Dosage: 1 - 150MG TAB ONCE MONTHLY PILL
     Dates: start: 20090501

REACTIONS (4)
  - CHEST PAIN [None]
  - DIARRHOEA [None]
  - MUSCULOSKELETAL CHEST PAIN [None]
  - NECK PAIN [None]
